FAERS Safety Report 9168981 (Version 1)
Quarter: 2013Q1

REPORT INFORMATION
  Report Type: Spontaneous
  Country: US (occurrence: None)
  Receive Date: 20130314
  Receipt Date: 20130314
  Transmission Date: 20140127
  Serious: No
  Sender: FDA-Public Use
  Company Number: None

PATIENT
  Age: 66 Year
  Sex: Male
  Weight: 82.3 kg

DRUGS (1)
  1. ATORVASTATIN [Suspect]
     Dosage: 5 MG EVERY DAY PO
     Route: 048
     Dates: start: 20130311, end: 20130313

REACTIONS (1)
  - Myalgia [None]
